FAERS Safety Report 4917197-7 (Version None)
Quarter: 2006Q1

REPORT INFORMATION
  Report Type: 
  Country: None (occurrence: None)
  Receive Date: 20060215
  Receipt Date: 20060202
  Transmission Date: 20060701
  Serious: No
  Sender: FDA-Public Use
  Company Number: 221771

PATIENT
  Age: 53 Year
  Sex: Female

DRUGS (10)
  1. AVASTIN [Suspect]
     Indication: BREAST CANCER
     Dosage: 300 MG, Q2W, INTRAVENOUS
     Route: 042
     Dates: start: 20050722, end: 20051118
  2. TAXOL [Concomitant]
  3. ZOMETA [Concomitant]
  4. FEMARA [Concomitant]
  5. HYDROCODONE                           (HYDROCODONE BITARTRATE) [Concomitant]
  6. KYTRIL [Concomitant]
  7. TAGAMET [Concomitant]
  8. DECADRON [Concomitant]
  9. ACETAMINOPHEN [Concomitant]
  10. SALINE (SODIUM CHLORIDE) [Concomitant]

REACTIONS (14)
  - CAROTID ARTERY DISEASE [None]
  - DISEASE PROGRESSION [None]
  - EPISTAXIS [None]
  - ERYTHEMA [None]
  - IRRITABILITY [None]
  - NASAL CONGESTION [None]
  - NASAL DISCOMFORT [None]
  - NASAL SEPTUM DEVIATION [None]
  - NASAL SEPTUM PERFORATION [None]
  - NASAL ULCER [None]
  - PAIN [None]
  - SINUS CONGESTION [None]
  - SINUS DISORDER [None]
  - VASCULAR CALCIFICATION [None]
